FAERS Safety Report 4888311-7 (Version None)
Quarter: 2006Q1

REPORT INFORMATION
  Report Type: 
  Country: None (occurrence: None)
  Receive Date: 20060123
  Receipt Date: 20051130
  Transmission Date: 20060701
  Serious: Yes (Other)
  Sender: FDA-Public Use
  Company Number: JP-JPN-A20052946

PATIENT
  Age: 80 Year
  Sex: Female

DRUGS (17)
  1. PAXIL [Suspect]
     Indication: DEPRESSION
     Route: 048
     Dates: start: 20041001
  2. CLOMIPRAMINE HYDROCHLORIDE [Suspect]
     Indication: DEPRESSION
     Dosage: 25MG PER DAY
     Route: 042
     Dates: start: 20041115, end: 20041124
  3. AKINETON [Suspect]
     Indication: DEPRESSION
     Route: 048
     Dates: start: 20040824, end: 20050117
  4. ETIZOLAM [Concomitant]
     Indication: DEPRESSION
     Route: 048
     Dates: start: 19991207, end: 20041115
  5. FLUNITRAZEPAM [Concomitant]
     Indication: INSOMNIA
     Dosage: 1MG PER DAY
     Route: 048
     Dates: end: 20050221
  6. MILNACIPRAN HYDROCHLORIDE [Concomitant]
     Indication: DEPRESSION
     Route: 048
     Dates: start: 20040608, end: 20040824
  7. SULPIRIDE [Concomitant]
     Indication: DEPRESSION
     Route: 048
     Dates: start: 20040722, end: 20050328
  8. MAGNESIUM OXIDE [Concomitant]
     Indication: CONSTIPATION
     Dosage: 330MG PER DAY
     Route: 048
     Dates: start: 20040824, end: 20041129
  9. MECOBALAMIN [Concomitant]
     Indication: NEUROPATHY PERIPHERAL
     Dosage: 1500MCG PER DAY
     Route: 048
     Dates: start: 20040901, end: 20041111
  10. NINJIN-TO [Concomitant]
     Indication: THIRST
     Dosage: 8G PER DAY
     Route: 048
     Dates: start: 20041105, end: 20041111
  11. AZITHROMYCIN [Concomitant]
     Dosage: 500MG PER DAY
     Route: 048
     Dates: start: 20041112, end: 20041114
  12. LEVOFLOXACIN [Concomitant]
     Dosage: 300MG PER DAY
     Route: 048
     Dates: start: 20041119, end: 20041121
  13. PURSENNID [Concomitant]
     Indication: CONSTIPATION
     Dosage: 24MG PER DAY
     Route: 048
     Dates: start: 20041122, end: 20041123
  14. VALSARTAN [Concomitant]
     Indication: HYPERTENSION
     Route: 048
     Dates: start: 20041126, end: 20051017
  15. QUAZEPAM [Concomitant]
     Indication: INSOMNIA
     Dosage: 15MG PER DAY
     Route: 048
     Dates: start: 20050222, end: 20050313
  16. ZOLPIDEM TARTRATE [Concomitant]
     Indication: INSOMNIA
     Dosage: 5MG PER DAY
     Route: 048
     Dates: start: 20050329
  17. NEUROTROPIN [Concomitant]
     Indication: CERVICOBRACHIAL SYNDROME
     Route: 048
     Dates: start: 20050426, end: 20051031

REACTIONS (5)
  - CONSCIOUSNESS FLUCTUATING [None]
  - DISORIENTATION [None]
  - DIZZINESS [None]
  - DRUG INTERACTION [None]
  - SOMNOLENCE [None]
